FAERS Safety Report 6080614-6 (Version None)
Quarter: 2009Q1

REPORT INFORMATION
  Report Type: 
  Country: None (occurrence: None)
  Receive Date: 20090121
  Receipt Date: 20080215
  Transmission Date: 20090719
  Serious: Yes (Other)
  Sender: FDA-Public Use
  Company Number: HQWYE032527FEB06

PATIENT
  Age: 61 Year
  Sex: Female

DRUGS (7)
  1. PREMPRO [Suspect]
  2. CYCRIN [Suspect]
  3. ESTRADIOL [Suspect]
  4. ESTRATAB [Suspect]
  5. MEDROXYPROGESTERONE [Suspect]
  6. PREMARIN [Suspect]
  7. PROVERA [Suspect]

REACTIONS (1)
  - BREAST CANCER [None]
